FAERS Safety Report 16067785 (Version 1)
Quarter: 2019Q1

REPORT INFORMATION
  Report Type: Spontaneous
  Country: US (occurrence: US)
  Receive Date: 20190212
  Receipt Date: 20190212
  Transmission Date: 20190418
  Serious: Yes (Hospitalization)
  Sender: FDA-Public Use
  Company Number: None

PATIENT
  Age: 57 Year
  Sex: Male
  Weight: 68.7 kg

DRUGS (9)
  1. LEVOTHYROXINE. [Concomitant]
     Active Substance: LEVOTHYROXINE
  2. CERAVE LOTION [Concomitant]
  3. OMEPRAZOLE. [Concomitant]
     Active Substance: OMEPRAZOLE
  4. SULFAMETHOXAZOLE/TMP DS 800MG/160MG [Suspect]
     Active Substance: SULFAMETHOXAZOLE\TRIMETHOPRIM
     Indication: ABSCESS
     Dosage: ?          OTHER DOSE:800/160 MG;?
     Route: 048
     Dates: start: 20181202, end: 20181209
  5. VITAMIN D [Concomitant]
     Active Substance: CHOLECALCIFEROL
  6. SIMVASTATIN. [Concomitant]
     Active Substance: SIMVASTATIN
  7. UREA. [Concomitant]
     Active Substance: UREA
  8. ENTECAVIR. [Concomitant]
     Active Substance: ENTECAVIR
  9. PSYLLIUM [Concomitant]
     Active Substance: PLANTAGO SEED

REACTIONS (7)
  - Generalised erythema [None]
  - Platelet count decreased [None]
  - Drug hypersensitivity [None]
  - White blood cell count decreased [None]
  - Cellulitis [None]
  - Body temperature increased [None]
  - Purpura [None]

NARRATIVE: CASE EVENT DATE: 20181210
